FAERS Safety Report 6233203-4 (Version None)
Quarter: 2009Q2

REPORT INFORMATION
  Report Type: 
  Country: None (occurrence: None)
  Receive Date: 20090617
  Receipt Date: 20090608
  Transmission Date: 20091009
  Serious: Yes (Hospitalization, Other)
  Sender: FDA-Public Use
  Company Number: PHHY2009FR03406

PATIENT
  Sex: Male
  Weight: 95 kg

DRUGS (6)
  1. EXJADE [Suspect]
     Indication: IRON OVERLOAD
     Dosage: 1500 MG/DAY
     Route: 048
     Dates: start: 20090101, end: 20090106
  2. DRUG THERAPY NOS [Concomitant]
  3. BACTRIM [Concomitant]
     Indication: IMMUNOSUPPRESSION
     Dosage: 400 MG/DAY
  4. ZELITREX                                /DEN/ [Concomitant]
     Indication: IMMUNOSUPPRESSION
     Dosage: 500 MG/DAY
  5. ASPEGIC 325 [Concomitant]
     Indication: CARDIAC DISORDER
     Dosage: 100 MG/DAY
  6. RAMIPRIL [Concomitant]
     Indication: CARDIAC DISORDER
     Dosage: 5 MG/DAY
     Dates: end: 20090106

REACTIONS (4)
  - BLOOD CREATININE INCREASED [None]
  - NEPHROPATHY [None]
  - RENAL FAILURE ACUTE [None]
  - RENAL TUBULAR NECROSIS [None]
